FAERS Safety Report 18176026 (Version 2)
Quarter: 2020Q3

REPORT INFORMATION
  Report Type: Spontaneous
  Country: CN (occurrence: CN)
  Receive Date: 20200820
  Receipt Date: 20200824
  Transmission Date: 20201103
  Serious: Yes (Life-Threatening)
  Sender: FDA-Public Use
  Company Number: CN-BEH-2020121302

PATIENT
  Age: 27 Year
  Sex: Female

DRUGS (1)
  1. ALBURX [Suspect]
     Active Substance: ALBUMIN HUMAN
     Indication: BLOOD ALBUMIN DECREASED
     Dosage: 50 MILLILITER, OD
     Route: 042
     Dates: start: 20200723, end: 20200724

REACTIONS (3)
  - Laryngeal oedema [Recovering/Resolving]
  - Throat tightness [Recovering/Resolving]
  - Dyspnoea [Recovering/Resolving]

NARRATIVE: CASE EVENT DATE: 20200723
